FAERS Safety Report 5952047-1 (Version None)
Quarter: 2008Q4

REPORT INFORMATION
  Report Type: 
  Country: None (occurrence: None)
  Receive Date: 20081113
  Receipt Date: 20080220
  Transmission Date: 20090506
  Serious: No
  Sender: FDA-Public Use
  Company Number: A0705211A

PATIENT
  Age: 81 Year
  Sex: Male
  Weight: 80.9 kg

DRUGS (5)
  1. CARVEDILOL [Suspect]
     Indication: DRUG USE FOR UNKNOWN INDICATION
     Dosage: 25MG TWICE PER DAY
     Route: 048
  2. TORSEMIDE [Concomitant]
     Route: 048
  3. LISINOPRIL [Concomitant]
     Route: 048
  4. CRESTOR [Concomitant]
     Route: 048
  5. LANOXIN [Concomitant]
     Route: 048

REACTIONS (3)
  - BLOOD PRESSURE INCREASED [None]
  - MALAISE [None]
  - OEDEMA PERIPHERAL [None]
